FAERS Safety Report 15634460 (Version 1)
Quarter: 2018Q4

REPORT INFORMATION
  Report Type: Spontaneous
  Country: DK (occurrence: DK)
  Receive Date: 20181119
  Receipt Date: 20181119
  Transmission Date: 20190205
  Serious: Yes (Hospitalization)
  Sender: FDA-Public Use
  Company Number: DK-009507513-1811DNK006311

PATIENT
  Age: 63 Year
  Sex: Female

DRUGS (6)
  1. MORPHINE [Concomitant]
     Active Substance: MORPHINE
     Indication: PAIN
     Dosage: STRENGTH: 10 MG. DOSE: 1 TABLET AS NECESSARY, MAX 6 TIMES DAILY
     Route: 048
     Dates: start: 20180821
  2. POTASSIUM CHLORIDE. [Concomitant]
     Active Substance: POTASSIUM CHLORIDE
     Indication: MINERAL SUPPLEMENTATION
     Dosage: STRENGTH: 750 MG
     Route: 048
     Dates: start: 20180824
  3. KEYTRUDA [Suspect]
     Active Substance: PEMBROLIZUMAB
     Indication: LUNG NEOPLASM MALIGNANT
     Dosage: DOSE: 125 MILLILITERS (ML) IN 50 ML NACL ISOTONIC INFUSION FLUID
     Route: 042
     Dates: start: 20180625, end: 20180806
  4. ZOLEDRONIC ACID [Concomitant]
     Active Substance: ZOLEDRONIC ACID
     Indication: HYPERCALCAEMIA
     Dosage: STRENGTH: 4 MG/ 100ML  DOSE: 4MG (100 ML) ON 16-JUL-2018, 14-SEP-2018 AND 12-OCT-2018
     Route: 042
     Dates: start: 20180716
  5. ACETAMINOPHEN. [Concomitant]
     Active Substance: ACETAMINOPHEN
     Indication: PAIN
     Dosage: STRENGTH: 500 MILLIGRAMS (MG) DOSE: 1 G AS NECESSARY, MAX 4 GRAMS (G) DAILY
     Route: 048
     Dates: start: 20180314
  6. PANTOPRAZOLE [Concomitant]
     Active Substance: PANTOPRAZOLE
     Indication: GASTROOESOPHAGEAL REFLUX DISEASE
     Dosage: STRENGTH: 40 MG
     Route: 048
     Dates: start: 20180811

REACTIONS (3)
  - Tubulointerstitial nephritis [Not Recovered/Not Resolved]
  - Hepatic function abnormal [Unknown]
  - Blood creatinine increased [Recovering/Resolving]

NARRATIVE: CASE EVENT DATE: 2018
